FAERS Safety Report 5922286-4 (Version None)
Quarter: 2008Q4

REPORT INFORMATION
  Report Type: 
  Country: None (occurrence: None)
  Receive Date: 20081017
  Receipt Date: 20081015
  Transmission Date: 20090506
  Serious: Yes (Death)
  Sender: FDA-Public Use
  Company Number: US-ASTRAZENECA-2008UW22912

PATIENT
  Sex: Male

DRUGS (5)
  1. SEROQUEL [Suspect]
     Indication: BIPOLAR DISORDER
     Dosage: 200 MG SAMPLE PACK
     Route: 048
  2. HYDROCODONE BITARTRATE [Concomitant]
  3. NEPROZON [Concomitant]
  4. TRAZODONE HCL [Concomitant]
  5. LORAZEPAM [Concomitant]

REACTIONS (1)
  - OVERDOSE [None]
